FAERS Safety Report 25792434 (Version 1)
Quarter: 2025Q3

REPORT INFORMATION
  Report Type: Spontaneous
  Country: RS (occurrence: RS)
  Receive Date: 20250911
  Receipt Date: 20250911
  Transmission Date: 20251020
  Serious: Yes (Other)
  Sender: AMGEN
  Company Number: RS-AMGEN-SRBSP2025180379

PATIENT

DRUGS (2)
  1. ADALIMUMAB [Suspect]
     Active Substance: ADALIMUMAB
     Indication: Crohn^s disease
     Route: 065
  2. ADALIMUMAB [Suspect]
     Active Substance: ADALIMUMAB
     Indication: Colitis ulcerative

REACTIONS (49)
  - Growth retardation [Unknown]
  - Hepatotoxicity [Unknown]
  - Myelosuppression [Unknown]
  - Endocarditis [Unknown]
  - Systemic lupus erythematosus [Unknown]
  - Demyelination [Unknown]
  - Thrombocytopenia [Unknown]
  - Leukopenia [Unknown]
  - Osteomyelitis [Unknown]
  - Lupus-like syndrome [Unknown]
  - Anaphylactic reaction [Unknown]
  - Pneumonia [Unknown]
  - Arrhythmia [Unknown]
  - Optic neuritis [Unknown]
  - Pancreatitis [Unknown]
  - Pulmonary fibrosis [Unknown]
  - Tuberculosis [Unknown]
  - Drug intolerance [Unknown]
  - Local reaction [Unknown]
  - Skin reaction [Unknown]
  - Osteopenia [Unknown]
  - Skin striae [Unknown]
  - Acne [Unknown]
  - Lymphopenia [Unknown]
  - Varicella zoster virus infection [Unknown]
  - Malaise [Unknown]
  - Dizziness [Unknown]
  - Diarrhoea [Unknown]
  - Skin disorder [Unknown]
  - Dermatitis allergic [Unknown]
  - Oedema peripheral [Unknown]
  - Anaemia [Unknown]
  - Influenza like illness [Unknown]
  - Tachycardia [Unknown]
  - Flushing [Unknown]
  - Infection [Unknown]
  - Hypersensitivity [Unknown]
  - Psoriasis [Unknown]
  - Nausea [Unknown]
  - Alopecia [Unknown]
  - Respiratory tract infection [Unknown]
  - Urticaria [Unknown]
  - Hypertension [Unknown]
  - Rash [Unknown]
  - Vomiting [Unknown]
  - Hepatic enzyme increased [Unknown]
  - Fungal infection [Unknown]
  - Abdominal pain [Unknown]
  - Herpes zoster [Unknown]
